FAERS Safety Report 18757309 (Version 1)
Quarter: 2021Q1

REPORT INFORMATION
  Report Type: Spontaneous
  Country: RO (occurrence: RO)
  Receive Date: 20210119
  Receipt Date: 20210119
  Transmission Date: 20210419
  Serious: Yes (Death, Other)
  Sender: FDA-Public Use
  Company Number: RO-BAXTER-2021BAX000602

PATIENT
  Age: 47 Year
  Sex: Female

DRUGS (7)
  1. ENDOXAN 200 MG PULBERE PENTRU SOLUTIE PERFUZABILA/INJECTABILA [Suspect]
     Active Substance: CYCLOPHOSPHAMIDE
     Indication: ANGIOCENTRIC LYMPHOMA
     Dosage: CYCLES OF 21 DAYS WITH NO DRUGS ON DAYS 15?21, BEACOPP REGIMEN
     Route: 065
  2. DOXIL [Suspect]
     Active Substance: DOXORUBICIN HYDROCHLORIDE
     Indication: ANGIOCENTRIC LYMPHOMA
     Dosage: CYCLES OF 21 DAYS WITH NO DRUGS ON DAYS 15?21, BEACOPP REGIMEN
     Route: 065
  3. ETOPOSIDE. [Suspect]
     Active Substance: ETOPOSIDE
     Indication: ANGIOCENTRIC LYMPHOMA
     Dosage: CYCLES OF 21 DAYS WITH NO DRUGS ON DAYS 15?21, BEACOPP REGIMEN
     Route: 065
  4. ONCOVIN [Suspect]
     Active Substance: VINCRISTINE SULFATE
     Indication: ANGIOCENTRIC LYMPHOMA
     Dosage: CYCLES OF 21 DAYS WITH NO DRUGS ON DAYS 15?21, BEACOPP REGIMEN
     Route: 065
  5. PROCARBAZINE [Suspect]
     Active Substance: PROCARBAZINE
     Indication: ANGIOCENTRIC LYMPHOMA
     Dosage: CYCLES OF 21 DAYS WITH NO DRUGS ON DAYS 15?21, BEACOPP REGIMEN
     Route: 065
  6. BLEOMYCIN [Suspect]
     Active Substance: BLEOMYCIN SULFATE
     Indication: ANGIOCENTRIC LYMPHOMA
     Dosage: CYCLES OF 21 DAYS WITH NO DRUGS ON DAYS 15?21, BEACOPP REGIMEN
     Route: 065
  7. PREDNISONE. [Suspect]
     Active Substance: PREDNISONE
     Indication: ANGIOCENTRIC LYMPHOMA
     Dosage: CYCLES OF 21 DAYS WITH NO DRUGS ON DAYS 15?21, BEACOPP REGIMEN
     Route: 065

REACTIONS (1)
  - Liver disorder [Fatal]
